FAERS Safety Report 4568138-6 (Version None)
Quarter: 2005Q1

REPORT INFORMATION
  Report Type: 
  Country: None (occurrence: None)
  Receive Date: 20050128
  Receipt Date: 20050121
  Transmission Date: 20050727
  Serious: Yes (Hospitalization)
  Sender: FDA-Public Use
  Company Number: 050124-0000562

PATIENT
  Sex: 0

DRUGS (1)
  1. CLORAZEPATE DIPOTASSIUM [Suspect]
     Indication: ABNORMAL BEHAVIOUR
     Dosage: 3.75 MG; BID; PO
     Route: 048
     Dates: start: 20041127, end: 20050103

REACTIONS (3)
  - CONVULSION [None]
  - MEDICATION ERROR [None]
  - PNEUMONIA ASPIRATION [None]
